FAERS Safety Report 14974691 (Version 1)
Quarter: 2018Q2

REPORT INFORMATION
  Report Type: Spontaneous
  Country: DE (occurrence: DE)
  Receive Date: 20180605
  Receipt Date: 20180605
  Transmission Date: 20180711
  Serious: Yes (Hospitalization)
  Sender: FDA-Public Use
  Company Number: DE-TEVA-2018-DE-902196

PATIENT
  Age: 62 Year
  Sex: Female
  Weight: 45 kg

DRUGS (16)
  1. TIOTROPIUM BROMIDE [Concomitant]
     Active Substance: TIOTROPIUM BROMIDE
     Dosage: 36 MILLIGRAM DAILY; 18 MG, 1-0-1-0
     Route: 055
  2. PANTOZOL [Concomitant]
     Active Substance: PANTOPRAZOLE SODIUM
     Dosage: 40 MILLIGRAM DAILY; 40 MG, 1-0-0-0
  3. DRONABINOL. [Concomitant]
     Active Substance: DRONABINOL
     Dosage: 15 MILLIGRAM DAILY; 5 MG, 1-1-1-0
     Route: 048
  4. FENTANYL. [Concomitant]
     Active Substance: FENTANYL
     Dosage: 50 ?G
     Route: 065
  5. SERTRALINE [Concomitant]
     Active Substance: SERTRALINE HYDROCHLORIDE
     Dosage: 150 MILLIGRAM DAILY; 150 MG, 1-0-0-0
     Route: 048
  6. PREDNISONE. [Suspect]
     Active Substance: PREDNISONE
     Dosage: 5 MILLIGRAM DAILY; 5 MG, 1-0-0-0
     Route: 048
  7. FLUTICASONE. [Suspect]
     Active Substance: FLUTICASONE
     Dosage: 50|250 MG, 1-0-0-0
     Route: 048
  8. SIMVASTATIN. [Concomitant]
     Active Substance: SIMVASTATIN
     Dosage: 40 MILLIGRAM DAILY; 40 MG, 0-0-1-0
     Route: 048
  9. LEVODOPA/BENSERAZID [Concomitant]
     Active Substance: BENSERAZIDE\LEVODOPA
     Dosage: 375 MILLIGRAM DAILY; 125 MG, 1-0-0-2
     Route: 048
  10. INSULIN GLARGINE [Concomitant]
     Active Substance: INSULIN GLARGINE
     Dosage: 5 IU (INTERNATIONAL UNIT) DAILY; 5 IE, 0-0-0-1
     Route: 048
  11. TRIMETHOPRIM. [Concomitant]
     Active Substance: TRIMETHOPRIM
     Dosage: 1920 MILLIGRAM DAILY; 960 MG, 1-0-1-0
     Route: 048
  12. URSOFALK [Concomitant]
     Active Substance: URSODIOL
     Dosage: 1000 MILLIGRAM DAILY; 500 MG, 1-0-1-0
     Route: 048
  13. EZETROL [Suspect]
     Active Substance: EZETIMIBE
     Dosage: 10 MILLIGRAM DAILY; 10 MG, 1-0-0-0
     Route: 048
  14. CALCITRIOL. [Concomitant]
     Active Substance: CALCITRIOL
     Dosage: .3 MILLIGRAM DAILY; 0.3 MG, 1-0-0-0
     Route: 048
  15. FUROSEMIDE. [Concomitant]
     Active Substance: FUROSEMIDE
     Dosage: 80 MILLIGRAM DAILY; 40 MG, 1-1-0-0
     Route: 048
  16. SIROLIMUS. [Suspect]
     Active Substance: SIROLIMUS
     Dosage: 1.5-0-0-0
     Route: 048

REACTIONS (1)
  - Systemic infection [Recovering/Resolving]

NARRATIVE: CASE EVENT DATE: 20151120
